FAERS Safety Report 8811551 (Version 2)
Quarter: 2012Q4

REPORT INFORMATION
  Report Type: 
  Country: US (occurrence: US)
  Receive Date: 20120927
  Receipt Date: 20121106
  Transmission Date: 20130627
  Serious: No
  Sender: FDA-Public Use
  Company Number: US-PFIZER INC-2012236186

PATIENT
  Age: 27 Year

DRUGS (8)
  1. EFFEXOR XR [Suspect]
     Dosage: UNK
  2. ZOLOFT [Suspect]
     Dosage: UNK
  3. REBIF [Suspect]
     Dosage: UNK
  4. TRAZODONE HYDROCHLORIDE [Suspect]
     Dosage: UNK
  5. PROVIGIL [Suspect]
     Dosage: UNK
  6. COPAXONE [Suspect]
     Dosage: UNK
  7. TYSABRI [Suspect]
     Dosage: UNK
  8. PAXIL [Suspect]
     Dosage: UNK

REACTIONS (1)
  - Drug hypersensitivity [Unknown]
